FAERS Safety Report 7550783-7 (Version None)
Quarter: 2011Q2

REPORT INFORMATION
  Report Type: 
  Country: None (occurrence: None)
  Receive Date: 20110616
  Receipt Date: 20110609
  Transmission Date: 20111010
  Serious: Yes (Other)
  Sender: FDA-Public Use
  Company Number: FR-JNJFOC-20110605858

PATIENT
  Sex: Female

DRUGS (8)
  1. CAFFEINE [Concomitant]
     Route: 065
  2. LEVOFLOXACIN [Suspect]
     Indication: PRODUCT USED FOR UNKNOWN INDICATION
     Route: 048
     Dates: start: 20080914, end: 20080924
  3. ACETAMINOPHEN [Concomitant]
     Route: 065
  4. PANTOPRAZOLE [Suspect]
     Indication: PRODUCT USED FOR UNKNOWN INDICATION
     Route: 065
  5. DEXTROPROPOXYPHENE HYDROCHLORIDE [Concomitant]
     Route: 065
  6. PHLOROGLUCINOL [Concomitant]
     Route: 065
  7. IBUPROFEN [Concomitant]
     Route: 065
  8. ANTISPASMODIC [Concomitant]
     Route: 065

REACTIONS (10)
  - PYREXIA [None]
  - LARYNGEAL CYST [None]
  - HEADACHE [None]
  - MYALGIA [None]
  - SPEECH DISORDER [None]
  - VISUAL IMPAIRMENT [None]
  - ARRHYTHMIA [None]
  - RESPIRATORY DISORDER [None]
  - NAUSEA [None]
  - VERTIGO [None]
